FAERS Safety Report 5224494-7 (Version None)
Quarter: 2007Q1

REPORT INFORMATION
  Report Type: 
  Country: None (occurrence: None)
  Receive Date: 20070126
  Receipt Date: 20070115
  Transmission Date: 20070707
  Serious: Yes (Other)
  Sender: FDA-Public Use
  Company Number: TAP2006Q02037

PATIENT
  Age: 41 Year
  Sex: Female
  Weight: 97.5 kg

DRUGS (3)
  1. LUPRON DEPOT-3 [Suspect]
     Indication: PELVIC PAIN
     Dosage: 11.25 MG, 1 IN 3 M, INTRA-MUSCULAR
     Route: 030
     Dates: start: 20060711, end: 20061011
  2. BUSPAR [Concomitant]
  3. LUNESTA [Concomitant]

REACTIONS (7)
  - BUNDLE BRANCH BLOCK RIGHT [None]
  - INSOMNIA [None]
  - IRRITABILITY [None]
  - SUPRAVENTRICULAR EXTRASYSTOLES [None]
  - VENTRICULAR EXTRASYSTOLES [None]
  - VENTRICULAR TACHYCARDIA [None]
  - WEIGHT INCREASED [None]
